FAERS Safety Report 7097367-5 (Version None)
Quarter: 2010Q4

REPORT INFORMATION
  Report Type: 
  Country: None (occurrence: None)
  Receive Date: 20101111
  Receipt Date: 20101104
  Transmission Date: 20110411
  Serious: Yes (Other)
  Sender: FDA-Public Use
  Company Number: GB-ABBOTT-10P-167-0684011-00

PATIENT
  Age: 57 Year
  Sex: Male

DRUGS (4)
  1. NORVIR [Suspect]
     Indication: HIV INFECTION
     Route: 048
     Dates: start: 20061019
  2. ETRAVIRINE [Suspect]
     Indication: HIV INFECTION
     Route: 048
     Dates: start: 20070123
  3. DARUNAVIR [Suspect]
     Indication: HIV INFECTION
     Dates: start: 20061019
  4. TRUVADA [Suspect]
     Indication: HIV INFECTION
     Route: 048
     Dates: start: 20060601, end: 20101026

REACTIONS (4)
  - BLOOD CREATININE INCREASED [None]
  - GLUCOSE URINE PRESENT [None]
  - PROTEIN URINE PRESENT [None]
  - RENAL TUBULAR DISORDER [None]
